FAERS Safety Report 10675910 (Version 2)
Quarter: 2014Q4

REPORT INFORMATION
  Report Type: Spontaneous
  Country: JP (occurrence: JP)
  Receive Date: 20141225
  Receipt Date: 20141225
  Transmission Date: 20150529
  Serious: Yes (Other)
  Sender: FDA-Public Use
  Company Number: JP-ROCHE-1496398

PATIENT
  Age: 72 Year
  Sex: Male
  Weight: 69 kg

DRUGS (9)
  1. TAMSULOSIN HYDROCHLORIDE. [Concomitant]
     Active Substance: TAMSULOSIN HYDROCHLORIDE
     Indication: BENIGN PROSTATIC HYPERPLASIA
     Route: 048
     Dates: start: 20120326
  2. CEFTRIAXONE. [Suspect]
     Active Substance: CEFTRIAXONE
     Indication: PNEUMONIA BACTERIAL
     Route: 041
     Dates: start: 20130817, end: 20130819
  3. DEXART [Concomitant]
     Active Substance: DEXAMETHASONE SODIUM PHOSPHATE
     Indication: LUNG ADENOCARCINOMA
     Route: 041
     Dates: start: 20130726, end: 20130728
  4. CALONAL [Concomitant]
     Active Substance: ACETAMINOPHEN
     Route: 048
     Dates: start: 20130813
  5. SULBACILLIN (JAPAN) [Concomitant]
     Indication: PNEUMONIA BACTERIAL
     Route: 041
     Dates: start: 20130726, end: 20130802
  6. NIZORAL [Concomitant]
     Active Substance: KETOCONAZOLE
     Indication: SKIN CANDIDA
     Route: 003
     Dates: start: 20130806
  7. TARCEVA [Suspect]
     Active Substance: ERLOTINIB HYDROCHLORIDE
     Indication: LUNG ADENOCARCINOMA
     Route: 048
     Dates: start: 20130718, end: 20130820
  8. LAC-B [Concomitant]
     Active Substance: BIFIDOBACTERIUM SPP.
     Indication: ENTEROCOLITIS
     Route: 048
     Dates: start: 20120130
  9. DEXART [Concomitant]
     Active Substance: DEXAMETHASONE SODIUM PHOSPHATE
     Indication: LUNG ADENOCARCINOMA
     Route: 041
     Dates: start: 20130729, end: 20130807

REACTIONS (4)
  - Neutrophil count decreased [Recovered/Resolved]
  - Rash [Not Recovered/Not Resolved]
  - Skin disorder [Unknown]
  - Agranulocytosis [Recovered/Resolved]

NARRATIVE: CASE EVENT DATE: 20130725
